FAERS Safety Report 6486688-2 (Version None)
Quarter: 2009Q4

REPORT INFORMATION
  Report Type: 
  Country: None (occurrence: None)
  Receive Date: 20091210
  Receipt Date: 20091203
  Transmission Date: 20100525
  Serious: Yes (Other)
  Sender: FDA-Public Use
  Company Number: PL-ROCHE-672792

PATIENT
  Sex: Female

DRUGS (1)
  1. TAMIFLU [Suspect]
     Indication: DRUG USE FOR UNKNOWN INDICATION
     Route: 065

REACTIONS (6)
  - DIARRHOEA [None]
  - DYSPEPSIA [None]
  - FOOD AVERSION [None]
  - HAEMATOCHEZIA [None]
  - HAEMORRHOIDS [None]
  - NAUSEA [None]
